FAERS Safety Report 21853536 (Version 2)
Quarter: 2023Q1

REPORT INFORMATION
  Report Type: Spontaneous
  Country: TR (occurrence: TR)
  Receive Date: 20230112
  Receipt Date: 20230128
  Transmission Date: 20230418
  Serious: Yes (Life-Threatening, Other)
  Sender: FDA-Public Use
  Company Number: TR-Axellia-004574

PATIENT
  Age: 7 Day
  Sex: Male
  Weight: 1.74 kg

DRUGS (1)
  1. VANCOMYCIN [Suspect]
     Active Substance: VANCOMYCIN
     Indication: Product used for unknown indication

REACTIONS (4)
  - Circulatory failure neonatal [Unknown]
  - Anaphylactic reaction [Unknown]
  - Stridor [Unknown]
  - Infusion related reaction [Unknown]
